FAERS Safety Report 10417325 (Version 1)
Quarter: 2014Q3

REPORT INFORMATION
  Report Type: Spontaneous
  Country: FR (occurrence: FR)
  Receive Date: 20140828
  Receipt Date: 20140828
  Transmission Date: 20150326
  Serious: Yes (Hospitalization)
  Sender: FDA-Public Use
  Company Number: FR-MYLAN-2014M1002619

PATIENT

DRUGS (2)
  1. NICARDIPINE [Suspect]
     Active Substance: NICARDIPINE
     Indication: PREMATURE LABOUR
     Route: 065
  2. NICARDIPINE [Suspect]
     Active Substance: NICARDIPINE
     Indication: OFF LABEL USE

REACTIONS (2)
  - Exposure during pregnancy [Unknown]
  - Pulmonary oedema [Recovered/Resolved]
